FAERS Safety Report 16002204 (Version 1)
Quarter: 2019Q1

REPORT INFORMATION
  Report Type: Spontaneous
  Country: US (occurrence: US)
  Receive Date: 20190225
  Receipt Date: 20190225
  Transmission Date: 20190418
  Serious: No
  Sender: FDA-Public Use
  Company Number: US-IGSA-SR10006207

PATIENT
  Age: 67 Year
  Sex: Male
  Weight: 93 kg

DRUGS (23)
  1. PREDNISONE. [Concomitant]
     Active Substance: PREDNISONE
  2. AMLODIPINE [Concomitant]
     Active Substance: AMLODIPINE BESYLATE
  3. TYLENOL [Concomitant]
     Active Substance: ACETAMINOPHEN
  4. FISH OIL [Concomitant]
     Active Substance: FISH OIL
  5. LECITHIN-19 [Concomitant]
  6. PROLASTIN-C [Suspect]
     Active Substance: .ALPHA.1-PROTEINASE INHIBITOR HUMAN
     Indication: ALPHA-1 ANTI-TRYPSIN DEFICIENCY
     Dosage: 5580 MG, Q.WK.
     Route: 042
     Dates: start: 20180323
  7. CELECOXIB. [Concomitant]
     Active Substance: CELECOXIB
  8. MONTELUKAST SODIUM. [Concomitant]
     Active Substance: MONTELUKAST SODIUM
  9. DEXILANT [Concomitant]
     Active Substance: DEXLANSOPRAZOLE
  10. VITAMIN E                          /00110501/ [Concomitant]
     Active Substance: TOCOPHEROL
  11. TURMERIC                           /01079602/ [Concomitant]
     Active Substance: HERBALS\TURMERIC
  12. PROLASTIN-C [Suspect]
     Active Substance: .ALPHA.1-PROTEINASE INHIBITOR HUMAN
     Dosage: 5580 MG, Q.WK.
     Route: 042
     Dates: start: 20180227
  13. BREO ELLIPTA [Concomitant]
     Active Substance: FLUTICASONE FUROATE\VILANTEROL TRIFENATATE
  14. PROBIOTIC                          /06395501/ [Concomitant]
     Active Substance: BIFIDOBACTERIUM ANIMALIS LACTIS
  15. MULTIVITAMINS [Concomitant]
     Active Substance: VITAMINS
  16. BIOFLEX                            /00808401/ [Concomitant]
     Active Substance: ACETAMINOPHEN\METHOCARBAMOL
  17. VIT B COMPLEX [Concomitant]
  18. VITAMIN C [Concomitant]
     Active Substance: ASCORBIC ACID
  19. SPIRIVA [Concomitant]
     Active Substance: TIOTROPIUM BROMIDE MONOHYDRATE
  20. AZITHROMYCIN ANHYDROUS. [Concomitant]
     Active Substance: AZITHROMYCIN ANHYDROUS
  21. MAGNESIUM OXIDE. [Concomitant]
     Active Substance: MAGNESIUM OXIDE
  22. PROLASTIN-C [Suspect]
     Active Substance: .ALPHA.1-PROTEINASE INHIBITOR HUMAN
     Dosage: 5580 MG, Q.WK.
     Route: 042
     Dates: start: 20180404, end: 20180404
  23. ALBUTEROL                          /00139501/ [Concomitant]
     Active Substance: ALBUTEROL

REACTIONS (2)
  - Chest discomfort [Not Recovered/Not Resolved]
  - Dyspnoea [Not Recovered/Not Resolved]

NARRATIVE: CASE EVENT DATE: 20180404
